FAERS Safety Report 7733076-4 (Version None)
Quarter: 2011Q3

REPORT INFORMATION
  Report Type: 
  Country: None (occurrence: None)
  Receive Date: 20110907
  Receipt Date: 20110831
  Transmission Date: 20111222
  Serious: Yes (Life-Threatening, Disabling, Other)
  Sender: FDA-Public Use
  Company Number: US-MERCK-1109USA00044

PATIENT
  Age: 73 Year
  Sex: Female

DRUGS (6)
  1. CYANOCOBALAMIN [Concomitant]
     Route: 065
  2. IVEMEND [Suspect]
     Indication: PROPHYLAXIS OF NAUSEA AND VOMITING
     Route: 042
     Dates: start: 20110829, end: 20110829
  3. DEXAMETHASONE [Concomitant]
     Route: 065
  4. ZOFRAN [Concomitant]
     Route: 065
  5. BENICAR [Concomitant]
     Route: 065
  6. TYLENOL-500 [Concomitant]
     Route: 065

REACTIONS (7)
  - PAIN [None]
  - HEADACHE [None]
  - CHEST PAIN [None]
  - OXYGEN SATURATION DECREASED [None]
  - HYPERTENSION [None]
  - ARTHRALGIA [None]
  - NAUSEA [None]
